FAERS Safety Report 21989083 (Version 5)
Quarter: 2024Q2

REPORT INFORMATION
  Report Type: Spontaneous
  Country: US (occurrence: US)
  Receive Date: 20230214
  Receipt Date: 20240613
  Transmission Date: 20240715
  Serious: Yes (Other)
  Sender: FDA-Public Use
  Company Number: US-GSKCCFUS-Case-01624132_AE-91705

PATIENT

DRUGS (1)
  1. BENLYSTA [Suspect]
     Active Substance: BELIMUMAB
     Indication: Product used for unknown indication
     Dosage: 200 MG, MO
     Dates: start: 2013

REACTIONS (8)
  - Systemic lupus erythematosus [Not Recovered/Not Resolved]
  - Pneumonia [Recovered/Resolved]
  - Burning sensation [Unknown]
  - COVID-19 [Recovered/Resolved]
  - Illness [Unknown]
  - Nasopharyngitis [Recovering/Resolving]
  - White blood cell count increased [Unknown]
  - Product complaint [Unknown]

NARRATIVE: CASE EVENT DATE: 20230701
